FAERS Safety Report 6428926-8 (Version None)
Quarter: 2009Q4

REPORT INFORMATION
  Report Type: 
  Country: None (occurrence: None)
  Receive Date: 20091102
  Receipt Date: 20091022
  Transmission Date: 20100525
  Serious: No
  Sender: FDA-Public Use
  Company Number: A-US2009-27189

PATIENT
  Age: 74 Year
  Sex: Female
  Weight: 100.7 kg

DRUGS (10)
  1. TRACLEER [Suspect]
     Indication: PULMONARY ARTERIAL HYPERTENSION
     Dosage: 62.5 MG, BID, ORAL
     Route: 048
     Dates: start: 20090701
  2. REVATIO [Concomitant]
  3. LASIX [Concomitant]
  4. POTASSIUM (POTASSIUM) [Concomitant]
  5. DIOVAN [Concomitant]
  6. VERAPAMIL [Concomitant]
  7. SERTRALINE HCL [Concomitant]
  8. ADVAIR DISKUS 100/50 [Concomitant]
  9. SINGULAIR [Concomitant]
  10. PLAVIX [Concomitant]

REACTIONS (4)
  - BACK PAIN [None]
  - CONSTIPATION [None]
  - FATIGUE [None]
  - OFF LABEL USE [None]
